FAERS Safety Report 5267177-X (Version None)
Quarter: 2007Q1

REPORT INFORMATION
  Report Type: 
  Country: None (occurrence: None)
  Receive Date: 20070316
  Receipt Date: 20070306
  Transmission Date: 20070707
  Serious: Yes (Other)
  Sender: FDA-Public Use
  Company Number: 2007UW03091

PATIENT
  Age: 19 Year
  Sex: Male

DRUGS (5)
  1. SEROQUEL [Suspect]
     Indication: PSYCHOTIC DISORDER
     Route: 048
     Dates: start: 20070101
  2. SEROQUEL [Suspect]
     Dosage: INCREASED
     Route: 048
  3. SEROQUEL [Suspect]
     Dosage: REDUCED
     Route: 048
  4. RISPERDAL [Suspect]
     Dates: start: 20060701, end: 20061101
  5. OLANZAPINE [Suspect]
     Dates: start: 20061101, end: 20061201

REACTIONS (1)
  - TOURETTE'S DISORDER [None]
